FAERS Safety Report 20958342 (Version 1)
Quarter: 2022Q2

REPORT INFORMATION
  Report Type: Spontaneous
  Country: US (occurrence: US)
  Receive Date: 20220614
  Receipt Date: 20220614
  Transmission Date: 20220721
  Serious: Yes (Other)
  Sender: FDA-Public Use
  Company Number: US-MLMSERVICE-20220113-2992917-1

PATIENT
  Age: 37 Week
  Sex: Male

DRUGS (2)
  1. PROPRANOLOL HYDROCHLORIDE [Suspect]
     Active Substance: PROPRANOLOL HYDROCHLORIDE
     Indication: Ascites
     Dosage: 1 MG/KG, 6 HOUR
     Route: 048
  2. PROPRANOLOL HYDROCHLORIDE [Suspect]
     Active Substance: PROPRANOLOL HYDROCHLORIDE
     Indication: Off label use
     Dosage: 0.75 MG/KG, PER DOSE
     Route: 065

REACTIONS (3)
  - Bradycardia [Unknown]
  - Product use in unapproved indication [Unknown]
  - Off label use [Unknown]
